FAERS Safety Report 8373755-1 (Version None)
Quarter: 2012Q2

REPORT INFORMATION
  Report Type: 
  Country: None (occurrence: None)
  Receive Date: 20120521
  Receipt Date: 20120514
  Transmission Date: 20120825
  Serious: Yes (Death, Hospitalization, Other)
  Sender: FDA-Public Use
  Company Number: CA-ROCHE-1049834

PATIENT
  Sex: Male
  Weight: 76.726 kg

DRUGS (11)
  1. VITAMIN D [Concomitant]
  2. DEXAMETHASONE [Concomitant]
  3. PROCHLORPERAZINE [Concomitant]
  4. ASPIRIN [Concomitant]
  5. LIPITOR [Concomitant]
  6. AVASTIN [Suspect]
     Indication: GLIOBLASTOMA
     Route: 042
     Dates: start: 20120217, end: 20120430
  7. ZANTAC [Concomitant]
  8. AVALIDE [Concomitant]
  9. REPAGLINIDE [Concomitant]
  10. ADALAT CC [Concomitant]
  11. METFORMIN HCL [Concomitant]

REACTIONS (7)
  - CONVULSION [None]
  - COGNITIVE DISORDER [None]
  - ORAL HERPES [None]
  - DEATH [None]
  - BLOOD POTASSIUM DECREASED [None]
  - FATIGUE [None]
  - CONFUSIONAL STATE [None]
